FAERS Safety Report 13717513 (Version 1)
Quarter: 2017Q3

REPORT INFORMATION
  Report Type: Spontaneous
  Country: US (occurrence: US)
  Receive Date: 20170703
  Receipt Date: 20170703
  Transmission Date: 20171127
  Serious: Yes (Hospitalization)
  Sender: FDA-Public Use
  Company Number: None

PATIENT
  Age: 73 Year
  Sex: Male

DRUGS (16)
  1. REPATHA [Suspect]
     Active Substance: EVOLOCUMAB
     Indication: TYPE IIA HYPERLIPIDAEMIA
     Route: 058
     Dates: start: 201607
  2. DIGOXIN. [Concomitant]
     Active Substance: DIGOXIN
  3. POT CL MICRO [Concomitant]
  4. DULOSETINE [Concomitant]
  5. BENAZEPRIL [Concomitant]
     Active Substance: BENAZEPRIL HYDROCHLORIDE
  6. DORZOLAMINE SOL [Concomitant]
  7. DOXAZOSIN [Concomitant]
     Active Substance: DOXAZOSIN\DOXAZOSIN MESYLATE
  8. COREG CR [Concomitant]
     Active Substance: CARVEDILOL PHOSPHATE
  9. LATANOPROST SOL [Concomitant]
  10. DULOXETINE. [Concomitant]
     Active Substance: DULOXETINE
  11. COMBIGAN SOL [Concomitant]
  12. METOLAZONE. [Concomitant]
     Active Substance: METOLAZONE
  13. CELECOXIB. [Concomitant]
     Active Substance: CELECOXIB
  14. DORZOLAMIDE SOL [Concomitant]
  15. FUROSEMIDE. [Concomitant]
     Active Substance: FUROSEMIDE
  16. WARFARIN [Concomitant]
     Active Substance: WARFARIN

REACTIONS (3)
  - Fall [None]
  - Ventricular tachycardia [None]
  - Device malfunction [None]

NARRATIVE: CASE EVENT DATE: 20170619
